FAERS Safety Report 8340765-X (Version None)
Quarter: 2012Q2

REPORT INFORMATION
  Report Type: 
  Country: None (occurrence: None)
  Receive Date: 20120507
  Receipt Date: 20110707
  Transmission Date: 20120825
  Serious: Yes (Hospitalization)
  Sender: FDA-Public Use
  Company Number: US-BIOGENIDEC-2010BI026754

PATIENT
  Age: 26 Year
  Sex: Female
  Weight: 113 kg

DRUGS (4)
  1. TYSABRI [Suspect]
     Indication: MULTIPLE SCLEROSIS
     Route: 042
     Dates: start: 20070223, end: 20100616
  2. BACLOFEN [Concomitant]
     Indication: TREMOR
  3. TYSABRI [Suspect]
     Route: 042
     Dates: start: 20110617
  4. NEURONTIN [Concomitant]
     Indication: TREMOR

REACTIONS (4)
  - MUSCULAR WEAKNESS [None]
  - DRUG HYPERSENSITIVITY [None]
  - MULTIPLE SCLEROSIS RELAPSE [None]
  - TREMOR [None]
